FAERS Safety Report 18935860 (Version 2)
Quarter: 2021Q2

REPORT INFORMATION
  Report Type: Report from Study
  Country: ES (occurrence: ES)
  Receive Date: 20210225
  Receipt Date: 20210419
  Transmission Date: 20210717
  Serious: Yes (Other)
  Sender: FDA-Public Use
  Company Number: ES-TEVA-2017-ES-826442

PATIENT
  Age: 49 Year
  Sex: Female

DRUGS (2)
  1. COPAXONE [Suspect]
     Active Substance: GLATIRAMER ACETATE
     Indication: RELAPSING-REMITTING MULTIPLE SCLEROSIS
     Route: 058
     Dates: start: 20150907
  2. COPAXONE [Suspect]
     Active Substance: GLATIRAMER ACETATE
     Route: 058
     Dates: start: 20140129

REACTIONS (14)
  - Choking [Recovered/Resolved]
  - Injection site induration [Not Recovered/Not Resolved]
  - Injection site haematoma [Recovering/Resolving]
  - Injection site mass [Recovered/Resolved]
  - Injection site pruritus [Unknown]
  - Pain in extremity [Recovering/Resolving]
  - Injection site pain [Recovered/Resolved]
  - Injection site urticaria [Recovering/Resolving]
  - Injected limb mobility decreased [Unknown]
  - Injection site erythema [Not Recovered/Not Resolved]
  - Myalgia [Recovering/Resolving]
  - Pain [Recovering/Resolving]
  - Anxiety [Recovering/Resolving]
  - Illness [Recovered/Resolved]

NARRATIVE: CASE EVENT DATE: 2017
